APPROVED DRUG PRODUCT: VANCOMYCIN HYDROCHLORIDE
Active Ingredient: VANCOMYCIN HYDROCHLORIDE
Strength: EQ 10GM BASE/VIAL
Dosage Form/Route: INJECTABLE;INJECTION
Application: A206243 | Product #002
Applicant: XELLIA PHARMACEUTICALS APS
Approved: Dec 23, 2015 | RLD: No | RS: No | Type: DISCN